FAERS Safety Report 17577327 (Version 1)
Quarter: 2020Q1

REPORT INFORMATION
  Report Type: Spontaneous
  Country: US (occurrence: US)
  Receive Date: 20200324
  Receipt Date: 20200324
  Transmission Date: 20200409
  Serious: No
  Sender: FDA-Public Use
  Company Number: US-VERTEX PHARMACEUTICALS-2020-005969

PATIENT
  Sex: Female

DRUGS (1)
  1. TRIKAFTA [Suspect]
     Active Substance: ELEXACAFTOR\IVACAFTOR\TEZACAFTOR
     Indication: CYSTIC FIBROSIS
     Dosage: 2 TABS (ELEXACAFTOR 100 MG, TEZACAFTOR 50 MG, IVACAFTOR 75 MG) AND 1 TAB (IVACAFTOR 150 MG)
     Route: 048
     Dates: start: 20191206

REACTIONS (3)
  - Vaginal discharge [Recovering/Resolving]
  - Influenza [Recovering/Resolving]
  - Flatulence [Recovering/Resolving]

NARRATIVE: CASE EVENT DATE: 2020
